FAERS Safety Report 5065358-1 (Version None)
Quarter: 2006Q3

REPORT INFORMATION
  Report Type: 
  Country: None (occurrence: None)
  Receive Date: 20060726
  Receipt Date: 20060711
  Transmission Date: 20061208
  Serious: Yes (Hospitalization)
  Sender: FDA-Public Use
  Company Number: 227021

PATIENT
  Age: 64 Year
  Sex: Male
  Weight: 94.1 kg

DRUGS (8)
  1. RITUXAN [Suspect]
     Indication: B-CELL LYMPHOMA
     Dosage: 375 MG/M2, Q28D, INTRAVENOUS
     Route: 042
     Dates: start: 20050211, end: 20050408
  2. FLUDARABINE [Suspect]
     Indication: B-CELL LYMPHOMA
     Dosage: 25 MG/M2, Q28D, INTRAVENOUS
     Route: 042
     Dates: start: 20050211, end: 20050412
  3. LIPITOR [Concomitant]
  4. PROTONIX [Concomitant]
  5. ACYCLOVIR [Concomitant]
  6. MEPRON [Concomitant]
  7. ZYRTEC [Concomitant]
  8. BENADRYL (DIPHENHYDRAMINIE HYDROCHLORIDE) [Concomitant]

REACTIONS (1)
  - SMALL CELL LUNG CANCER STAGE UNSPECIFIED [None]
